FAERS Safety Report 5236127-4 (Version None)
Quarter: 2007Q1

REPORT INFORMATION
  Report Type: 
  Country: None (occurrence: None)
  Receive Date: 20070212
  Receipt Date: 20070202
  Transmission Date: 20070707
  Serious: Yes (Other)
  Sender: FDA-Public Use
  Company Number: 2006UW27084

PATIENT
  Age: 35 Year
  Sex: Female

DRUGS (11)
  1. SEROQUEL [Suspect]
     Indication: BIPOLAR DISORDER
     Route: 048
     Dates: start: 20040101
  2. PAXIL [Concomitant]
  3. ADDERALL 10 [Concomitant]
  4. KLONOPIN [Concomitant]
  5. MULTIPLE PAIN MEDICATIONS [Concomitant]
  6. ROZEREM [Concomitant]
  7. MOBIC [Concomitant]
  8. PERCOCET [Concomitant]
     Dosage: 1-2 DF Q 6-8 HRS
  9. OXYCONTIN [Concomitant]
     Dosage: 1-2 DF
  10. SOMA [Concomitant]
  11. NEXIUM [Concomitant]

REACTIONS (1)
  - METABOLIC SYNDROME [None]
